FAERS Safety Report 20751101 (Version 1)
Quarter: 2022Q2

REPORT INFORMATION
  Report Type: Spontaneous
  Country: US (occurrence: None)
  Receive Date: 20220426
  Receipt Date: 20220426
  Transmission Date: 20220720
  Serious: Yes (unspecified)
  Sender: FDA-Public Use
  Company Number: None

PATIENT
  Age: 87 Year
  Sex: Female
  Weight: 50 kg

DRUGS (1)
  1. ROCURONIUM [Suspect]
     Active Substance: ROCURONIUM BROMIDE
     Indication: Surgery
     Dosage: OTHER FREQUENCY : ONCE;?
     Route: 040
     Dates: start: 20220425, end: 20220425

REACTIONS (2)
  - Airway complication of anaesthesia [None]
  - Drug effect less than expected [None]

NARRATIVE: CASE EVENT DATE: 20220425
